FAERS Safety Report 8012808-4 (Version None)
Quarter: 2011Q4

REPORT INFORMATION
  Report Type: 
  Country: None (occurrence: None)
  Receive Date: 20111229
  Receipt Date: 20111223
  Transmission Date: 20120403
  Serious: Yes (Death)
  Sender: FDA-Public Use
  Company Number: US-CELGENEUS-163-21880-11123251

PATIENT
  Sex: Female

DRUGS (10)
  1. REGLAN [Concomitant]
     Dosage: 10 MILLIGRAM
     Route: 048
  2. DECADRON [Concomitant]
     Dosage: .5 MILLIGRAM
     Route: 048
  3. LEVOTHYROXINE SODIUM [Concomitant]
     Dosage: 25 MICROGRAM
     Route: 048
  4. REVLIMID [Suspect]
     Dosage: 10 MILLIGRAM
     Route: 048
     Dates: start: 20100930
  5. DEXAMETHASONE [Concomitant]
     Dosage: .25 MILLIGRAM
     Route: 048
  6. PHENERGAN [Concomitant]
     Dosage: SUP 12.5MG
     Route: 065
  7. ACETAMINOPHEN [Concomitant]
     Dosage: 325 MILLIGRAM
     Route: 048
  8. MAXALT [Concomitant]
     Dosage: 10 MILLIGRAM
     Route: 048
  9. MORPHINE [Concomitant]
     Dosage: 10/0.5ML
     Route: 065
  10. VICODIN ES [Concomitant]
     Dosage: 7.5-750
     Route: 048

REACTIONS (1)
  - DEATH [None]
